FAERS Safety Report 23216984 (Version 1)
Quarter: 2023Q4

REPORT INFORMATION
  Report Type: Spontaneous
  Country: GB (occurrence: GB)
  Receive Date: 20231122
  Receipt Date: 20231122
  Transmission Date: 20240110
  Serious: Yes (Other)
  Sender: FDA-Public Use
  Company Number: None

PATIENT

DRUGS (1)
  1. ACETIC ACID [Suspect]
     Active Substance: ACETIC ACID
     Indication: Product used for unknown indication
     Dosage: THERAPY END DATE: NOT ASKED
     Route: 065
     Dates: start: 202310

REACTIONS (5)
  - Ear inflammation [Unknown]
  - Otorrhoea [Unknown]
  - Application site burn [Unknown]
  - Product prescribing error [Unknown]
  - Drug ineffective [Unknown]
